FAERS Safety Report 19716252 (Version 1)
Quarter: 2021Q3

REPORT INFORMATION
  Report Type: Spontaneous
  Country: IT (occurrence: IT)
  Receive Date: 20210818
  Receipt Date: 20210818
  Transmission Date: 20211014
  Serious: Yes (Life-Threatening)
  Sender: FDA-Public Use
  Company Number: IT-009507513-2108ITA003975

PATIENT
  Age: 44 Year
  Sex: Male
  Weight: 54 kg

DRUGS (2)
  1. MODERNA COVID?19 VACCINE [Concomitant]
     Active Substance: CX-024414
     Indication: COVID-19 IMMUNISATION
     Dosage: 1 DOSAGE FORM
     Route: 030
     Dates: start: 20210430, end: 20210430
  2. PEMBROLIZUMAB. [Suspect]
     Active Substance: PEMBROLIZUMAB
     Indication: COLON CANCER
     Route: 050
     Dates: start: 20210219, end: 20210408

REACTIONS (1)
  - Bone marrow failure [Not Recovered/Not Resolved]

NARRATIVE: CASE EVENT DATE: 20210430
